FAERS Safety Report 18292287 (Version 1)
Quarter: 2020Q3

REPORT INFORMATION
  Report Type: Spontaneous
  Country: US (occurrence: US)
  Receive Date: 20200922
  Receipt Date: 20200922
  Transmission Date: 20201103
  Serious: Yes (Hospitalization)
  Sender: FDA-Public Use
  Company Number: US-HORIZON-PRO-0219-2020

PATIENT
  Age: 30 Year
  Sex: Male

DRUGS (4)
  1. ELIQUIS [Suspect]
     Active Substance: APIXABAN
     Indication: THROMBOSIS
  2. LISINOPRIL. [Concomitant]
     Active Substance: LISINOPRIL
  3. FLONASE [Concomitant]
     Active Substance: FLUTICASONE PROPIONATE
     Indication: HYPERSENSITIVITY
  4. PROCYSBI [Suspect]
     Active Substance: CYSTEAMINE BITARTRATE
     Indication: CYSTINOSIS
     Dosage: 1000MG TWICE DAILY

REACTIONS (14)
  - Vision blurred [Unknown]
  - Thrombosis [Unknown]
  - Blood potassium increased [Unknown]
  - Product administration error [Unknown]
  - Contusion [Unknown]
  - Pruritus [Unknown]
  - Vertigo [Unknown]
  - Bone pain [Unknown]
  - Fistula [Unknown]
  - Ear congestion [Unknown]
  - Musculoskeletal stiffness [Unknown]
  - Blood phosphorus increased [Unknown]
  - Skin infection [Unknown]
  - Nausea [Unknown]

NARRATIVE: CASE EVENT DATE: 202008
